FAERS Safety Report 24179051 (Version 1)
Quarter: 2024Q3

REPORT INFORMATION
  Report Type: Spontaneous
  Country: GB (occurrence: US)
  Receive Date: 20240806
  Receipt Date: 20240806
  Transmission Date: 20241016
  Serious: No
  Sender: FERRING
  Company Number: GB-BESINS-2024-01798

PATIENT

DRUGS (3)
  1. PROGESTERONE [Suspect]
     Active Substance: PROGESTERONE
     Indication: Product used for unknown indication
     Dosage: UNK
     Route: 050
  2. ESTRADIOL [Suspect]
     Active Substance: ESTRADIOL
     Indication: Hormone replacement therapy
     Dosage: NEW CAN OF OESTROGEL
     Route: 050
  3. ESTRADIOL [Suspect]
     Active Substance: ESTRADIOL
     Dosage: OLD PUMP
     Route: 050

REACTIONS (2)
  - Rash [Unknown]
  - Intentional dose omission [Recovered/Resolved]
